FAERS Safety Report 6313400 (Version 3)
Quarter: 2020Q3

REPORT INFORMATION
  Report Type: Report from Study
  Country: DE (occurrence: DE)
  Receive Date: 20070516
  Receipt Date: 20090327
  Transmission Date: 20201105
  Serious: Yes (Other)
  Sender: FDA-Public Use
  Company Number: DE-ROCHE-496719

PATIENT
  Age: 73 Year
  Sex: Female
  Weight: 68.5 kg

DRUGS (2)
  1. ANASTROZOLE. [Suspect]
     Active Substance: ANASTROZOLE
     Indication: BREAST CANCER
     Route: 048
     Dates: start: 20060317
  2. IBANDRONIC ACID. [Suspect]
     Active Substance: IBANDRONIC ACID
     Indication: BREAST CANCER
     Dosage: FORM : INFUSION.
     Route: 042
     Dates: start: 20060317, end: 20070411

REACTIONS (1)
  - Osteolysis [Recovered/Resolved]

NARRATIVE: CASE EVENT DATE: 20070502
